FAERS Safety Report 10777958 (Version 1)
Quarter: 2015Q1

REPORT INFORMATION
  Report Type: Spontaneous
  Country: US (occurrence: US)
  Receive Date: 20150209
  Receipt Date: 20150209
  Transmission Date: 20150721
  Serious: No
  Sender: FDA-Public Use
  Company Number: US-AMGEN-USASP2014024259

PATIENT
  Sex: Female

DRUGS (15)
  1. HERCEPTIN [Suspect]
     Active Substance: TRASTUZUMAB
     Dosage: 130 MG, UNK
     Route: 042
     Dates: start: 20120419
  2. HERCEPTIN [Suspect]
     Active Substance: TRASTUZUMAB
     Indication: BREAST CANCER FEMALE
     Dosage: 405 MG, UNK
     Route: 042
     Dates: start: 20110216
  3. HERCEPTIN [Suspect]
     Active Substance: TRASTUZUMAB
     Dosage: 135 MG, UNK
     Route: 042
     Dates: start: 20120405
  4. PALONOSETRON [Concomitant]
     Active Substance: PALONOSETRON
     Dosage: 0.25 MG, UNK
     Route: 042
  5. HEPARIN [Concomitant]
     Active Substance: HEPARIN SODIUM
     Dosage: UNK
  6. NEULASTA [Suspect]
     Active Substance: PEGFILGRASTIM
     Indication: PRODUCT USED FOR UNKNOWN INDICATION
     Dosage: 6 MG, UNK
     Route: 042
  7. DEXAMETHASONE. [Concomitant]
     Active Substance: DEXAMETHASONE
     Dosage: 20 MG, UNK
  8. BENADRYL [Concomitant]
     Active Substance: DIPHENHYDRAMINE HYDROCHLORIDE
     Dosage: 50 MG, UNK
     Route: 042
  9. ZOFRAN                             /00955301/ [Concomitant]
     Active Substance: ONDANSETRON HYDROCHLORIDE
     Dosage: UNK
  10. HERCEPTIN [Suspect]
     Active Substance: TRASTUZUMAB
     Dosage: 385 MG, UNK
     Route: 042
     Dates: start: 20120809
  11. HERCEPTIN [Suspect]
     Active Substance: TRASTUZUMAB
     Dosage: 136 MG, UNK
     Route: 042
     Dates: start: 20120315
  12. HERCEPTIN [Suspect]
     Active Substance: TRASTUZUMAB
     Dosage: 129 MG, UNK
     Route: 042
     Dates: start: 20120412
  13. HERCEPTIN [Suspect]
     Active Substance: TRASTUZUMAB
     Dosage: 410 MG, UNK
     Route: 042
     Dates: start: 20130124
  14. HERCEPTIN [Suspect]
     Active Substance: TRASTUZUMAB
     Dosage: 365 MG, UNK
     Route: 042
     Dates: start: 20120628
  15. DOCETAXEL. [Concomitant]
     Active Substance: DOCETAXEL
     Dosage: 130 MG, UNK
     Route: 042

REACTIONS (5)
  - Nausea [Recovered/Resolved]
  - Decreased appetite [Unknown]
  - Stomatitis [Unknown]
  - Rash pruritic [Unknown]
  - Abdominal discomfort [Unknown]
